FAERS Safety Report 15008792 (Version 1)
Quarter: 2018Q2

REPORT INFORMATION
  Report Type: Spontaneous
  Country: US (occurrence: US)
  Receive Date: 20180527
  Receipt Date: 20180527
  Transmission Date: 20180711
  Serious: Yes (Other)
  Sender: FDA-Public Use
  Company Number: None

PATIENT
  Age: 53 Year
  Sex: Female
  Weight: 90 kg

DRUGS (1)
  1. CHANTIX [Suspect]
     Active Substance: VARENICLINE TARTRATE
     Indication: EX-TOBACCO USER
     Dosage: ?          QUANTITY:2 DF DOSAGE FORM;?
     Route: 048
     Dates: start: 20180503, end: 20180527

REACTIONS (6)
  - Gait disturbance [None]
  - Tremor [None]
  - Arthralgia [None]
  - Back pain [None]
  - Dysstasia [None]
  - Nausea [None]

NARRATIVE: CASE EVENT DATE: 20180509
